FAERS Safety Report 10591082 (Version 5)
Quarter: 2015Q2

REPORT INFORMATION
  Report Type: Report from Study
  Country: US (occurrence: US)
  Receive Date: 20141118
  Receipt Date: 20150416
  Transmission Date: 20150821
  Serious: Yes (Hospitalization, Other)
  Sender: FDA-Public Use
  Company Number: US-SANOFI-AVENTIS-2013SA002272

PATIENT
  Age: 67 Year
  Sex: Female

DRUGS (6)
  1. VICTOZA [Concomitant]
     Active Substance: LIRAGLUTIDE
  2. LEVEMIR [Concomitant]
     Active Substance: INSULIN DETEMIR
  3. LYRICA [Concomitant]
     Active Substance: PREGABALIN
  4. AMPYRA [Concomitant]
     Active Substance: DALFAMPRIDINE
  5. AUBAGIO [Suspect]
     Active Substance: TERIFLUNOMIDE
     Indication: MULTIPLE SCLEROSIS
     Route: 048
     Dates: start: 20121121
  6. AUBAGIO [Suspect]
     Active Substance: TERIFLUNOMIDE
     Indication: MULTIPLE SCLEROSIS
     Route: 048
     Dates: start: 20121219

REACTIONS (10)
  - Back injury [Unknown]
  - Gait disturbance [Unknown]
  - Nausea [Unknown]
  - Arthropathy [Unknown]
  - Road traffic accident [Unknown]
  - Dizziness [Unknown]
  - Muscular weakness [Recovering/Resolving]
  - Spinal disorder [Unknown]
  - Back disorder [Unknown]
  - Drug dose omission [Unknown]

NARRATIVE: CASE EVENT DATE: 201410
